FAERS Safety Report 5571425-6 (Version None)
Quarter: 2007Q4

REPORT INFORMATION
  Report Type: 
  Country: None (occurrence: None)
  Receive Date: 20071219
  Receipt Date: 20071211
  Transmission Date: 20080405
  Serious: Yes (Other)
  Sender: FDA-Public Use
  Company Number: 231227J07USA

PATIENT
  Age: 46 Year
  Sex: Female
  Weight: 79.3795 kg

DRUGS (4)
  1. REBIF [Suspect]
     Indication: MULTIPLE SCLEROSIS
     Dosage: 44 MCG, 3 IN 1 WEEKS, SUBCUTANEOUS
     Route: 058
     Dates: start: 20050524
  2. CYMBALTA [Concomitant]
  3. KLONOPIN [Concomitant]
  4. VICODIN [Concomitant]

REACTIONS (2)
  - ARTHRITIS [None]
  - CARTILAGE INJURY [None]
